FAERS Safety Report 19452994 (Version 1)
Quarter: 2021Q2

REPORT INFORMATION
  Report Type: Spontaneous
  Country: US (occurrence: US)
  Receive Date: 20210623
  Receipt Date: 20210623
  Transmission Date: 20210717
  Serious: No
  Sender: FDA-Public Use
  Company Number: US-PFIZER INC-2021678035

PATIENT
  Age: 71 Year
  Sex: Female
  Weight: 68.04 kg

DRUGS (2)
  1. LORAZEPAM. [Concomitant]
     Active Substance: LORAZEPAM
     Indication: ANXIETY
     Dosage: 0.5
  2. DESVENLAFAXINE SUCCINATE MONOHYDRATE [Suspect]
     Active Substance: DESVENLAFAXINE SUCCINATE
     Indication: DEPRESSION
     Dosage: 100 MG, 1X/DAY IN THE MORNING
     Route: 048
     Dates: start: 202105, end: 2021

REACTIONS (8)
  - Headache [Unknown]
  - Crying [Unknown]
  - Gait disturbance [Unknown]
  - Drug ineffective [Unknown]
  - Nausea [Unknown]
  - Drug screen positive [Unknown]
  - Dizziness [Unknown]
  - Diarrhoea [Unknown]

NARRATIVE: CASE EVENT DATE: 202105
